FAERS Safety Report 17726665 (Version 1)
Quarter: 2020Q2

REPORT INFORMATION
  Report Type: Spontaneous
  Country: None (occurrence: FI)
  Receive Date: 20200430
  Receipt Date: 20200430
  Transmission Date: 20200714
  Serious: Yes (Death, Hospitalization)
  Sender: FDA-Public Use
  Company Number: FI-ORION CORPORATION ORION PHARMA-TREX2020-1942

PATIENT
  Age: 10 Year
  Sex: Female

DRUGS (3)
  1. METHOTREXATE. [Suspect]
     Active Substance: METHOTREXATE
     Indication: SERONEGATIVE ARTHRITIS
     Route: 065
     Dates: start: 1998
  2. AZATHIOPRINE. [Suspect]
     Active Substance: AZATHIOPRINE
     Indication: SERONEGATIVE ARTHRITIS
     Route: 065
     Dates: start: 1988
  3. GLUCOCORTICOIDS [Suspect]
     Active Substance: UNSPECIFIED INGREDIENT
     Indication: SERONEGATIVE ARTHRITIS
     Route: 065

REACTIONS (6)
  - Drug ineffective [Unknown]
  - Cardiac failure [Fatal]
  - Acute respiratory distress syndrome [Fatal]
  - Candida sepsis [Unknown]
  - Neutropenia [Unknown]
  - Pneumonia [Unknown]
